FAERS Safety Report 10223386 (Version 5)
Quarter: 2014Q2

REPORT INFORMATION
  Report Type: Spontaneous
  Country: SK (occurrence: SK)
  Receive Date: 20140609
  Receipt Date: 20140627
  Transmission Date: 20141212
  Serious: Yes (Hospitalization, Other)
  Sender: FDA-Public Use
  Company Number: SK-AMGEN INC.-SVKSP2014036083

PATIENT
  Age: 5 Year
  Sex: Male

DRUGS (7)
  1. ENBREL [Suspect]
     Indication: JUVENILE IDIOPATHIC ARTHRITIS
     Dosage: 10 MG, ONCE A WEEK (EVERY THURSDAY)
     Route: 065
     Dates: start: 20120606, end: 2012
  2. ENBREL [Suspect]
     Dosage: 25 MG, WEEKLY
     Route: 065
     Dates: start: 20121211, end: 20140424
  3. MEDROL                             /00049601/ [Concomitant]
     Dosage: UNK
  4. METOJECT [Concomitant]
     Dosage: UNK
  5. QUAMATEL [Concomitant]
     Dosage: UNK
  6. FOLIC ACID [Concomitant]
     Dosage: UNK
  7. PROBIOTICS                         /90114801/ [Concomitant]
     Dosage: UNK

REACTIONS (7)
  - General physical health deterioration [Unknown]
  - Swelling [Unknown]
  - Hypertrichosis [Unknown]
  - Pyrexia [Unknown]
  - Disease progression [Unknown]
  - Cataract [Unknown]
  - No therapeutic response [Unknown]
